FAERS Safety Report 7753474-2 (Version None)
Quarter: 2011Q3

REPORT INFORMATION
  Report Type: 
  Country: None (occurrence: None)
  Receive Date: 20110915
  Receipt Date: 20110906
  Transmission Date: 20111222
  Serious: Yes (Hospitalization)
  Sender: FDA-Public Use
  Company Number: US-UCBSA-040856

PATIENT
  Sex: Female
  Weight: 65.77 kg

DRUGS (8)
  1. FLAGYL [Concomitant]
     Indication: CROHN'S DISEASE
     Route: 048
     Dates: start: 20110701
  2. PREDNISONE [Concomitant]
     Indication: CROHN'S DISEASE
     Dates: start: 19930101
  3. CALCIUM CARBONATE [Concomitant]
     Indication: CROHN'S DISEASE
  4. INFLIXIMAB [Concomitant]
     Indication: CROHN'S DISEASE
     Dates: start: 20000101, end: 20110101
  5. MULTI-VITAMIN [Concomitant]
     Indication: CROHN'S DISEASE
  6. CIMZIA [Suspect]
     Indication: CROHN'S DISEASE
     Route: 058
     Dates: start: 20110716
  7. SYNTHROID [Concomitant]
     Indication: CROHN'S DISEASE
  8. CIPROFLOXACIN [Concomitant]
     Indication: CROHN'S DISEASE
     Route: 048
     Dates: start: 20110701

REACTIONS (1)
  - ABSCESS INTESTINAL [None]
